FAERS Safety Report 14918302 (Version 1)
Quarter: 2018Q2

REPORT INFORMATION
  Report Type: Spontaneous
  Country: US (occurrence: US)
  Receive Date: 20180521
  Receipt Date: 20180521
  Transmission Date: 20180711
  Serious: No
  Sender: FDA-Public Use
  Company Number: US-TEVA-801058USA

PATIENT
  Sex: Male

DRUGS (6)
  1. VALSARTAN. [Concomitant]
     Active Substance: VALSARTAN
  2. PREDNISONE. [Concomitant]
     Active Substance: PREDNISONE
  3. ANASTROZOLE. [Concomitant]
     Active Substance: ANASTROZOLE
  4. TESTOSTERONE CYPIONATE. [Suspect]
     Active Substance: TESTOSTERONE CYPIONATE
     Dates: start: 201604
  5. METOPROLOL. [Concomitant]
     Active Substance: METOPROLOL
  6. TRULICITY [Concomitant]
     Active Substance: DULAGLUTIDE

REACTIONS (3)
  - Product quality issue [Unknown]
  - Nausea [Recovered/Resolved]
  - Malaise [Unknown]

NARRATIVE: CASE EVENT DATE: 20170718
